FAERS Safety Report 6676851-X (Version None)
Quarter: 2010Q2

REPORT INFORMATION
  Report Type: 
  Country: None (occurrence: None)
  Receive Date: 20100412
  Receipt Date: 20100331
  Transmission Date: 20101027
  Serious: Yes (Other)
  Sender: FDA-Public Use
  Company Number: DE-ROCHE-696058

PATIENT
  Sex: Female
  Weight: 68 kg

DRUGS (2)
  1. PEGINTERFERON ALFA-2A [Suspect]
     Route: 058
     Dates: start: 20090514, end: 20100329
  2. RIBAVIRIN [Suspect]
     Route: 048
     Dates: start: 20090514, end: 20100329

REACTIONS (1)
  - DEEP VEIN THROMBOSIS [None]
